FAERS Safety Report 24277481 (Version 1)
Quarter: 2024Q3

REPORT INFORMATION
  Report Type: Report from Study
  Country: US (occurrence: US)
  Receive Date: 20240903
  Receipt Date: 20240903
  Transmission Date: 20241017
  Serious: Yes (Other)
  Sender: ABBVIE
  Company Number: US-ABBVIE-5899434

PATIENT
  Sex: Female

DRUGS (1)
  1. HUMIRA [Suspect]
     Active Substance: ADALIMUMAB
     Indication: Psoriatic arthropathy
     Route: 058

REACTIONS (7)
  - Peripheral nerve injury [Unknown]
  - Back disorder [Not Recovered/Not Resolved]
  - Liver disorder [Not Recovered/Not Resolved]
  - Intervertebral disc protrusion [Unknown]
  - Intervertebral disc degeneration [Unknown]
  - Oesophageal disorder [Not Recovered/Not Resolved]
  - Hepatomegaly [Unknown]

NARRATIVE: CASE EVENT DATE: 20240101
